FAERS Safety Report 13756660 (Version 1)
Quarter: 2017Q3

REPORT INFORMATION
  Report Type: Spontaneous
  Country: CZ (occurrence: CZ)
  Receive Date: 20170714
  Receipt Date: 20170714
  Transmission Date: 20171127
  Serious: Yes (Life-Threatening)
  Sender: FDA-Public Use
  Company Number: CZ-BAXTER-2017BAX027682

PATIENT
  Sex: Male

DRUGS (11)
  1. ACTINOMYCIN D [Suspect]
     Active Substance: DACTINOMYCIN
     Indication: LEIOMYOMA
  2. METHOTREXATE. [Concomitant]
     Active Substance: METHOTREXATE
     Indication: LEIOMYOMA
     Route: 065
  3. ENDOXAN 1G [Suspect]
     Active Substance: CYCLOPHOSPHAMIDE
     Indication: LEIOMYOMA
     Dosage: VAC REGIMEN SECOND COURSE
     Route: 065
  4. ENDOXAN 1G [Suspect]
     Active Substance: CYCLOPHOSPHAMIDE
     Indication: OFF LABEL USE
  5. VINCRISTINE [Suspect]
     Active Substance: VINCRISTINE
     Indication: LEIOMYOMA
  6. VINBLASTINE [Concomitant]
     Active Substance: VINBLASTINE
     Dosage: 10% OF ORIGINAL DOSE
     Route: 065
  7. VINCRISTINE [Suspect]
     Active Substance: VINCRISTINE
     Indication: NEOPLASM PROGRESSION
     Dosage: VAC REGIMEN
     Route: 065
  8. METHOTREXATE. [Concomitant]
     Active Substance: METHOTREXATE
     Dosage: 30% OF ORIGINAL DOSE
     Route: 065
  9. ENDOXAN 1G [Suspect]
     Active Substance: CYCLOPHOSPHAMIDE
     Indication: NEOPLASM PROGRESSION
     Dosage: VAC REGIMEN FIRST COURSE (75% REDUCTION OF 50 MG/KG)
     Route: 065
  10. VINBLASTINE [Concomitant]
     Active Substance: VINBLASTINE
     Indication: LEIOMYOMA
     Route: 065
  11. ACTINOMYCIN D [Suspect]
     Active Substance: DACTINOMYCIN
     Indication: NEOPLASM PROGRESSION
     Dosage: VAC REGIMEN
     Route: 065

REACTIONS (5)
  - Febrile neutropenia [Unknown]
  - Gastrointestinal toxicity [Unknown]
  - Subileus [Unknown]
  - Impaired gastric emptying [Unknown]
  - Pneumonia [Unknown]
